FAERS Safety Report 20491487 (Version 6)
Quarter: 2022Q3

REPORT INFORMATION
  Report Type: Other
  Country: IN (occurrence: None)
  Receive Date: 20220218
  Receipt Date: 20220919
  Transmission Date: 20221026
  Serious: Yes (Death, Hospitalization, Other)
  Sender: FDA-Public Use
  Company Number: IN-ROCHE-3024733

PATIENT
  Age: 60 Year
  Sex: Female

DRUGS (2)
  1. KADCYLA [Suspect]
     Active Substance: ADO-TRASTUZUMAB EMTANSINE
     Indication: Breast cancer metastatic
     Route: 042
  2. KADCYLA [Suspect]
     Active Substance: ADO-TRASTUZUMAB EMTANSINE
     Route: 042
     Dates: start: 20201014, end: 20220824

REACTIONS (6)
  - Pulmonary mass [Unknown]
  - Pulmonary fibrosis [Unknown]
  - Anaemia [Unknown]
  - Blood iron decreased [Unknown]
  - Transferrin saturation decreased [Unknown]
  - Neoplasm malignant [Fatal]

NARRATIVE: CASE EVENT DATE: 20220901
